FAERS Safety Report 14857405 (Version 2)
Quarter: 2018Q4

REPORT INFORMATION
  Report Type: Spontaneous
  Country: US (occurrence: US)
  Receive Date: 20180508
  Receipt Date: 20181102
  Transmission Date: 20190204
  Serious: No
  Sender: FDA-Public Use
  Company Number: US-RADIUS HEALTH INC.-2018US000398

PATIENT
  Age: 64 Year
  Sex: Female
  Weight: 60 kg

DRUGS (1)
  1. TYMLOS [Suspect]
     Active Substance: ABALOPARATIDE
     Indication: OSTEOPOROSIS POSTMENOPAUSAL
     Dosage: 80 MCG, ONCE DAILY
     Route: 058
     Dates: start: 201802

REACTIONS (7)
  - Injection site pruritus [Recovered/Resolved]
  - Gait disturbance [Recovering/Resolving]
  - Contusion [Recovering/Resolving]
  - Injection site mass [Recovered/Resolved]
  - Injection site erythema [Not Recovered/Not Resolved]
  - Injection site bruising [Unknown]
  - Dyspepsia [Recovered/Resolved]

NARRATIVE: CASE EVENT DATE: 20180508
